FAERS Safety Report 7339636-7 (Version None)
Quarter: 2011Q1

REPORT INFORMATION
  Report Type: 
  Country: None (occurrence: None)
  Receive Date: 20110308
  Receipt Date: 20110224
  Transmission Date: 20110831
  Serious: Yes (Life-Threatening)
  Sender: FDA-Public Use
  Company Number: PL-GENENTECH-314662

PATIENT
  Sex: Female

DRUGS (4)
  1. CYCLOPHOSPHAMIDE [Suspect]
     Indication: NON-HODGKIN'S LYMPHOMA UNSPECIFIED HISTOLOGY INDOLENT
     Dosage: 1550 MG, UNK
     Route: 042
     Dates: start: 20100204, end: 20100301
  2. PREDNISONE TAB [Suspect]
     Indication: NON-HODGKIN'S LYMPHOMA UNSPECIFIED HISTOLOGY INDOLENT
     Dosage: 500 MG, UNK
     Route: 042
     Dates: start: 20100204, end: 20100301
  3. VINCRISTINE [Suspect]
     Indication: NON-HODGKIN'S LYMPHOMA UNSPECIFIED HISTOLOGY INDOLENT
     Dosage: 2 MG, UNK
     Route: 042
     Dates: start: 20100204, end: 20100301
  4. RITUXIMAB [Suspect]
     Indication: NON-HODGKIN'S LYMPHOMA UNSPECIFIED HISTOLOGY INDOLENT
     Dosage: 375 MG/M2, UNK
     Route: 042
     Dates: start: 20100204, end: 20100301

REACTIONS (1)
  - LARGE INTESTINE CARCINOMA [None]
